FAERS Safety Report 7206266-7 (Version None)
Quarter: 2010Q4

REPORT INFORMATION
  Report Type: 
  Country: None (occurrence: None)
  Receive Date: 20101229
  Receipt Date: 20101229
  Transmission Date: 20110411
  Serious: Yes (Other)
  Sender: FDA-Public Use
  Company Number: None

PATIENT
  Sex: Female
  Weight: 70.9 kg

DRUGS (3)
  1. LEVOTHYROXINE SODIUM [Suspect]
     Indication: AUTOIMMUNE THYROIDITIS
     Dosage: 100MCG 1X/DAY ORAL (047)
     Route: 048
     Dates: start: 20090907, end: 20090917
  2. LEVOTHYROXINE SODIUM [Suspect]
     Indication: HYPOTHYROIDISM
     Dosage: 100MCG 1X/DAY ORAL (047)
     Route: 048
     Dates: start: 20090907, end: 20090917
  3. SYNTHROID [Suspect]

REACTIONS (9)
  - ANXIETY [None]
  - HYPERTHYROIDISM [None]
  - HYPERVENTILATION [None]
  - HYPOAESTHESIA [None]
  - NEUROPATHY PERIPHERAL [None]
  - PALPITATIONS [None]
  - PARAESTHESIA [None]
  - PRODUCT SUBSTITUTION ISSUE [None]
  - SYNCOPE [None]
